FAERS Safety Report 6010301-1 (Version None)
Quarter: 2008Q4

REPORT INFORMATION
  Report Type: 
  Country: None (occurrence: None)
  Receive Date: 20081218
  Receipt Date: 20080513
  Transmission Date: 20090506
  Serious: No
  Sender: FDA-Public Use
  Company Number: A0727719A

PATIENT
  Age: 13 Year
  Sex: Female

DRUGS (6)
  1. FLONASE [Suspect]
     Dosage: 1SPR PER DAY
     Route: 045
     Dates: start: 20080428
  2. ADVAIR DISKUS 500/50 [Concomitant]
  3. ISOPROPYL ALCOHOL COMPOUND LIQUID [Concomitant]
  4. ALLERGY MEDICATION [Concomitant]
  5. UNKNOWN MEDICATION [Concomitant]
  6. UNKNOWN MEDICATION [Concomitant]

REACTIONS (1)
  - MIGRAINE [None]
